FAERS Safety Report 5700941-9 (Version None)
Quarter: 2008Q2

REPORT INFORMATION
  Report Type: 
  Country: None (occurrence: None)
  Receive Date: 20080410
  Receipt Date: 20080409
  Transmission Date: 20081010
  Serious: Yes (Other)
  Sender: FDA-Public Use
  Company Number: B0515799A

PATIENT
  Age: 34 Year
  Sex: Male

DRUGS (1)
  1. ARRANON [Suspect]
     Dosage: 2250MG PER DAY
     Route: 042
     Dates: start: 20080407, end: 20080407

REACTIONS (1)
  - SUPRAVENTRICULAR TACHYCARDIA [None]
